FAERS Safety Report 5360078-8 (Version None)
Quarter: 2007Q2

REPORT INFORMATION
  Report Type: 
  Country: None (occurrence: None)
  Receive Date: 20070618
  Receipt Date: 20061206
  Transmission Date: 20071010
  Serious: Yes (Other)
  Sender: FDA-Public Use
  Company Number: US-ASTRAZENECA-2006UW27296

PATIENT
  Age: 74 Year
  Sex: Female

DRUGS (8)
  1. FASLODEX [Suspect]
     Indication: BREAST CANCER
     Dosage: 250 MG/5 ML
     Route: 030
  2. LOTENSIN [Concomitant]
  3. LIPITOR [Concomitant]
  4. COUMADIN [Concomitant]
  5. DIGOXIN [Concomitant]
  6. TYLENOL [Concomitant]
  7. CALCIUM WITH VITAMIN D [Concomitant]
  8. MULTIVITAMIN [Concomitant]

REACTIONS (1)
  - HYPERSENSITIVITY [None]
